FAERS Safety Report 9298416 (Version 2)
Quarter: 2013Q2

REPORT INFORMATION
  Report Type: Spontaneous
  Country: US (occurrence: US)
  Receive Date: 20130520
  Receipt Date: 20130529
  Transmission Date: 20140414
  Serious: Yes (Hospitalization, Other)
  Sender: FDA-Public Use
  Company Number: US-SANOFI-AVENTIS-2013SA049241

PATIENT
  Age: 67 Year
  Sex: Male
  Weight: 66.22 kg

DRUGS (7)
  1. PLAVIX [Suspect]
     Indication: PERIPHERAL ARTERY ANGIOPLASTY
     Dates: start: 20130416
  2. CLOPIDOGREL BISULFATE [Suspect]
  3. ASPIRIN [Concomitant]
  4. COUMADIN [Concomitant]
  5. LISINOPRIL [Concomitant]
     Indication: BLOOD PRESSURE
  6. VITAMIN B12 [Concomitant]
  7. PRAVASTATIN [Concomitant]

REACTIONS (9)
  - Blood pressure increased [Recovered/Resolved]
  - Blood pressure decreased [Recovered/Resolved]
  - Syncope [Recovered/Resolved]
  - Pelvic venous thrombosis [Unknown]
  - Thrombotic thrombocytopenic purpura [Recovered/Resolved]
  - Deep vein thrombosis [Unknown]
  - Haematoma [Unknown]
  - Platelet count increased [Unknown]
  - Phlebitis [Unknown]
